FAERS Safety Report 6607536-3 (Version None)
Quarter: 2010Q1

REPORT INFORMATION
  Report Type: 
  Country: None (occurrence: None)
  Receive Date: 20100301
  Receipt Date: 20100222
  Transmission Date: 20100710
  Serious: Yes (Other)
  Sender: FDA-Public Use
  Company Number: PHHY2010US10765

PATIENT
  Sex: Female

DRUGS (3)
  1. EXELON [Suspect]
     Dosage: UNK
     Route: 062
  2. EXELON [Suspect]
     Dosage: 4.6 MG, UNK
     Route: 062
     Dates: start: 20091101
  3. ARICEPT [Suspect]

REACTIONS (3)
  - AGITATION [None]
  - SYNCOPE [None]
  - TREMOR [None]
